FAERS Safety Report 6383280-5 (Version None)
Quarter: 2009Q3

REPORT INFORMATION
  Report Type: 
  Country: None (occurrence: None)
  Receive Date: 20090930
  Receipt Date: 20090928
  Transmission Date: 20100115
  Serious: Yes (Hospitalization, Other)
  Sender: FDA-Public Use
  Company Number: TW-ROXANE LABORATORIES, INC.-2009-RO-01000RO

PATIENT
  Age: 45 Year
  Sex: Female

DRUGS (6)
  1. LAMOTRIGINE [Suspect]
     Indication: DEPRESSION
     Dosage: 25 MG
  2. LAMOTRIGINE [Suspect]
     Indication: BIPOLAR DISORDER
     Dosage: 200 MG
  3. TOPIRAMATE [Suspect]
     Indication: BIPOLAR DISORDER
     Dosage: 100 MG
  4. BUPROPION HCL [Suspect]
     Indication: BIPOLAR DISORDER
     Dosage: 150 MG
  5. ANTIHISTAMINES [Concomitant]
     Indication: SJOGREN'S SYNDROME
  6. STEROIDS [Concomitant]
     Indication: SJOGREN'S SYNDROME

REACTIONS (2)
  - DEPRESSION [None]
  - SJOGREN'S SYNDROME [None]
